FAERS Safety Report 18875976 (Version 1)
Quarter: 2021Q1

REPORT INFORMATION
  Report Type: Spontaneous
  Country: CH (occurrence: CH)
  Receive Date: 20210210
  Receipt Date: 20210210
  Transmission Date: 20210420
  Serious: Yes (Other)
  Sender: FDA-Public Use
  Company Number: CH-009507513-2102CHE003203

PATIENT
  Age: 81 Year
  Sex: Female

DRUGS (2)
  1. LUKAIR [Suspect]
     Active Substance: MONTELUKAST SODIUM
     Indication: ASTHMA
     Dosage: UNK
     Route: 048
  2. LIXIANA [Suspect]
     Active Substance: EDOXABAN TOSYLATE
     Dosage: UNK
     Dates: start: 201905

REACTIONS (7)
  - Respiratory failure [Unknown]
  - Pulmonary hypertension [Unknown]
  - Pulmonary embolism [Unknown]
  - Cor pulmonale [Unknown]
  - Pulmonary hypoperfusion [Unknown]
  - Pleural thickening [Unknown]
  - Pulmonary mass [Unknown]
